FAERS Safety Report 4305127-0 (Version None)
Quarter: 2004Q1

REPORT INFORMATION
  Report Type: 
  Country: None (occurrence: None)
  Receive Date: 20040225
  Receipt Date: 20040225
  Transmission Date: 20041129
  Serious: Yes (Hospitalization)
  Sender: FDA-Public Use
  Company Number: None

PATIENT
  Sex: Male
  Weight: 55 kg

DRUGS (7)
  1. AMIODARONE HCL [Suspect]
     Indication: PROPHYLAXIS
     Dosage: 5 MG /MIN IV CONT INFUSION
     Route: 042
     Dates: start: 20031029, end: 20031030
  2. EPINEPHRINE [Concomitant]
  3. INSULIN [Concomitant]
  4. ASPIRIN [Concomitant]
  5. GENTAMICIN [Concomitant]
  6. VANCOMYCIN [Concomitant]
  7. RANITIDINE [Concomitant]

REACTIONS (2)
  - BUNDLE BRANCH BLOCK [None]
  - NODAL RHYTHM [None]
